FAERS Safety Report 11221421 (Version 1)
Quarter: 2015Q2

REPORT INFORMATION
  Report Type: Spontaneous
  Country: US (occurrence: US)
  Receive Date: 20150626
  Receipt Date: 20150626
  Transmission Date: 20150821
  Serious: No
  Sender: FDA-Public Use
  Company Number: US-PFIZER INC-2015207795

PATIENT
  Age: 58 Year
  Sex: Female
  Weight: 95 kg

DRUGS (7)
  1. LOSARTAN [Concomitant]
     Active Substance: LOSARTAN
     Indication: BLOOD PRESSURE
     Dosage: 100 MG, UNK
     Route: 048
  2. SYNTHROID [Concomitant]
     Active Substance: LEVOTHYROXINE SODIUM
     Indication: HYPOTHYROIDISM
     Dosage: 150 ?G, UNK
     Route: 048
  3. FUROSEMIDE. [Concomitant]
     Active Substance: FUROSEMIDE
     Indication: BLOOD PRESSURE
     Dosage: 20 MG, UNK
  4. FUROSEMIDE. [Concomitant]
     Active Substance: FUROSEMIDE
     Indication: DIURETIC THERAPY
  5. LEXAPRO [Concomitant]
     Active Substance: ESCITALOPRAM OXALATE
     Indication: DEPRESSION
     Dosage: 20 MG, UNK
     Route: 048
  6. DIAZEPAM. [Concomitant]
     Active Substance: DIAZEPAM
     Indication: ANXIETY
     Dosage: 5 MG, 3X/DAY
  7. LYRICA [Suspect]
     Active Substance: PREGABALIN
     Indication: FIBROMYALGIA
     Dosage: 50 MG, 3X/DAY
     Route: 048
     Dates: start: 20150611

REACTIONS (3)
  - Memory impairment [Unknown]
  - Somnolence [Recovering/Resolving]
  - Logorrhoea [Recovering/Resolving]

NARRATIVE: CASE EVENT DATE: 20150611
